FAERS Safety Report 4468040-4 (Version None)
Quarter: 2004Q4

REPORT INFORMATION
  Report Type: 
  Country: None (occurrence: None)
  Receive Date: 20041004
  Receipt Date: 20041004
  Transmission Date: 20050328
  Serious: Yes (Other)
  Sender: FDA-Public Use
  Company Number: None

PATIENT
  Age: 58 Year
  Sex: Male
  Weight: 101.6 kg

DRUGS (2)
  1. LISINOPRIL [Suspect]
  2. HYDROCHLOROTHIAZIDE [Concomitant]

REACTIONS (1)
  - COUGH [None]
